FAERS Safety Report 5529881-5 (Version None)
Quarter: 2007Q4

REPORT INFORMATION
  Report Type: 
  Country: None (occurrence: None)
  Receive Date: 20071127
  Receipt Date: 20071113
  Transmission Date: 20080405
  Serious: Yes (Other)
  Sender: FDA-Public Use
  Company Number: S07-USA-03158-01

PATIENT
  Age: 26 Year
  Sex: Female

DRUGS (4)
  1. CERVIDIL [Suspect]
  2. CHITOSAN [Concomitant]
  3. ISOTRIM [Concomitant]
  4. VITAPAK [Concomitant]

REACTIONS (5)
  - BREAST FEEDING [None]
  - DRUG EXPOSURE DURING PREGNANCY [None]
  - HEART RATE INCREASED [None]
  - LABOUR COMPLICATION [None]
  - MECONIUM STAIN [None]
